FAERS Safety Report 13997538 (Version 1)
Quarter: 2017Q3

REPORT INFORMATION
  Report Type: Spontaneous
  Country: US (occurrence: US)
  Receive Date: 20170921
  Receipt Date: 20170921
  Transmission Date: 20171128
  Serious: No
  Sender: FDA-Public Use
  Company Number: US-ALLERGAN-1716519US

PATIENT
  Age: 33 Year
  Sex: Female
  Weight: 51.71 kg

DRUGS (3)
  1. SUCRALFATE - BP [Suspect]
     Active Substance: SUCRALFATE
     Indication: GASTROOESOPHAGEAL REFLUX DISEASE
  2. SUCRALFATE - BP [Suspect]
     Active Substance: SUCRALFATE
     Indication: GASTRITIS
     Dosage: 1 G, QID
     Route: 048
  3. SUCRALFATE - BP [Suspect]
     Active Substance: SUCRALFATE
     Indication: OESOPHAGITIS

REACTIONS (7)
  - Abdominal pain upper [Recovered/Resolved]
  - Fatigue [Recovered/Resolved]
  - Malaise [Unknown]
  - Drug ineffective [Unknown]
  - Gastrooesophageal reflux disease [Recovered/Resolved]
  - Dizziness [Recovered/Resolved]
  - Hyperhidrosis [Recovered/Resolved]

NARRATIVE: CASE EVENT DATE: 201704
